FAERS Safety Report 14034951 (Version 1)
Quarter: 2017Q4

REPORT INFORMATION
  Report Type: Spontaneous
  Country: US (occurrence: US)
  Receive Date: 20171003
  Receipt Date: 20171003
  Transmission Date: 20180321
  Serious: Yes (Hospitalization, Other)
  Sender: FDA-Public Use
  Company Number: US-TEVA-811111USA

PATIENT
  Sex: Female

DRUGS (2)
  1. METOPROLOL. [Suspect]
     Active Substance: METOPROLOL
     Route: 065
  2. PROAIR HFA [Suspect]
     Active Substance: ALBUTEROL SULFATE
     Indication: ASTHMA EXERCISE INDUCED
     Dosage: 2 PUFFS
     Route: 065

REACTIONS (29)
  - Fall [Unknown]
  - Road traffic accident [Unknown]
  - Injection site bruising [Unknown]
  - Herpes zoster [Unknown]
  - Tooth fracture [Unknown]
  - Pneumonia [Unknown]
  - Dysstasia [Unknown]
  - Feeling abnormal [Unknown]
  - Injection site pain [Unknown]
  - Somnolence [Unknown]
  - Limb injury [Unknown]
  - Pain [Unknown]
  - Cardiac murmur [Unknown]
  - Post-traumatic neck syndrome [Unknown]
  - Depression [Unknown]
  - Loss of consciousness [Unknown]
  - Housebound [Unknown]
  - Fatigue [Unknown]
  - Muscle rupture [Unknown]
  - Decreased activity [Unknown]
  - Joint swelling [Unknown]
  - Asthenia [Unknown]
  - Tremor [Unknown]
  - Dry throat [Unknown]
  - Hypertension [Unknown]
  - Heat stroke [Unknown]
  - Intentional underdose [Unknown]
  - Skin burning sensation [Unknown]
  - Hypoaesthesia [Unknown]

NARRATIVE: CASE EVENT DATE: 201701
